FAERS Safety Report 8614400-7 (Version None)
Quarter: 2012Q3

REPORT INFORMATION
  Report Type: 
  Country: None (occurrence: None)
  Receive Date: 20120823
  Receipt Date: 20120809
  Transmission Date: 20120928
  Serious: No
  Sender: FDA-Public Use
  Company Number: US-BAYER-2012-082688

PATIENT

DRUGS (1)
  1. ULTRAVIST 150 [Suspect]
     Dosage: UNK
     Dates: start: 20120809, end: 20120809

REACTIONS (1)
  - ADVERSE EVENT [None]
